FAERS Safety Report 5070078-3 (Version None)
Quarter: 2006Q3

REPORT INFORMATION
  Report Type: 
  Country: None (occurrence: None)
  Receive Date: 20060803
  Receipt Date: 20060724
  Transmission Date: 20061208
  Serious: Yes (Hospitalization)
  Sender: FDA-Public Use
  Company Number: DE-BRISTOL-MYERS SQUIBB COMPANY-13461454

PATIENT
  Age: 77 Year
  Sex: Male

DRUGS (10)
  1. ERBITUX [Suspect]
     Indication: NON-SMALL CELL LUNG CANCER
     Route: 042
     Dates: start: 20060718, end: 20060718
  2. CARBOPLATIN [Suspect]
     Indication: NON-SMALL CELL LUNG CANCER
     Dosage: DOSAGE FORM = AUC 5
     Route: 042
     Dates: start: 20060711, end: 20060711
  3. GEMCITABINE [Suspect]
     Indication: NON-SMALL CELL LUNG CANCER
     Route: 042
     Dates: start: 20060718, end: 20060718
  4. SIMVASTATIN [Concomitant]
  5. ALLOPURINOL [Concomitant]
  6. METOPROLOL TARTRATE [Concomitant]
  7. CIBADREX [Concomitant]
  8. TIOTROPIUM BROMIDE [Concomitant]
  9. FORMOTEROL [Concomitant]
  10. ESOMEPRAZOLE MAGNESIUM [Concomitant]

REACTIONS (3)
  - LEUKOPENIA [None]
  - PYREXIA [None]
  - THROMBOCYTOPENIA [None]
